FAERS Safety Report 8571617-8 (Version None)
Quarter: 2012Q3

REPORT INFORMATION
  Report Type: 
  Country: None (occurrence: None)
  Receive Date: 20120806
  Receipt Date: 20120801
  Transmission Date: 20120928
  Serious: Yes (Other)
  Sender: FDA-Public Use
  Company Number: PHHY2012JP066901

PATIENT

DRUGS (1)
  1. TEGRETOL [Suspect]
     Indication: MANIA
     Route: 048

REACTIONS (2)
  - INFECTION [None]
  - CONVULSION [None]
